FAERS Safety Report 5066654-4 (Version None)
Quarter: 2006Q3

REPORT INFORMATION
  Report Type: 
  Country: None (occurrence: None)
  Receive Date: 20060801
  Receipt Date: 20060714
  Transmission Date: 20061208
  Serious: No
  Sender: FDA-Public Use
  Company Number: 2006SE03955

PATIENT
  Age: 15 Year
  Sex: Male

DRUGS (4)
  1. SEROQUEL [Suspect]
     Route: 048
     Dates: start: 20040101
  2. SEROQUEL [Suspect]
     Route: 048
     Dates: start: 20060301, end: 20060709
  3. SEROQUEL [Suspect]
     Dosage: FROM 1000 MG/DAILY TO 600 MG/DAILY
     Route: 048
     Dates: start: 20060710, end: 20060714
  4. SEROQUEL [Suspect]
     Route: 048
     Dates: start: 20060715

REACTIONS (2)
  - LEUKOPENIA [None]
  - NEUTROPENIA [None]
